FAERS Safety Report 15426685 (Version 1)
Quarter: 2018Q3

REPORT INFORMATION
  Report Type: Spontaneous
  Country: US (occurrence: US)
  Receive Date: 20180925
  Receipt Date: 20180925
  Transmission Date: 20181010
  Serious: No
  Sender: FDA-Public Use
  Company Number: US-MAYNE PHARMA-2018MYN000712

PATIENT

DRUGS (5)
  1. NORVASC [Concomitant]
     Active Substance: AMLODIPINE BESYLATE
     Dosage: 5 MG, BID
     Route: 048
     Dates: start: 2003
  2. CLONIDINE. [Concomitant]
     Active Substance: CLONIDINE
     Dosage: .05 MG, PRN
     Route: 048
     Dates: start: 2013
  3. CLONIDINE. [Suspect]
     Active Substance: CLONIDINE
     Indication: HYPERTENSION
     Dosage: 0.2 MG, Q24H
     Route: 062
     Dates: start: 2013
  4. VALSARTAN. [Concomitant]
     Active Substance: VALSARTAN
     Dosage: 300 MG, QD
     Route: 048
     Dates: start: 2003
  5. WARFARIN [Concomitant]
     Active Substance: WARFARIN
     Dosage: 6 MG, QD
     Route: 048
     Dates: start: 2011

REACTIONS (2)
  - Blood pressure increased [Not Recovered/Not Resolved]
  - Heart rate decreased [Not Recovered/Not Resolved]

NARRATIVE: CASE EVENT DATE: 201802
